FAERS Safety Report 4340651-6 (Version None)
Quarter: 2004Q2

REPORT INFORMATION
  Report Type: 
  Country: None (occurrence: None)
  Receive Date: 20040414
  Receipt Date: 20040401
  Transmission Date: 20050107
  Serious: Yes (Hospitalization)
  Sender: FDA-Public Use
  Company Number: FRQYE206507JUL03

PATIENT
  Age: 37 Year
  Sex: Male

DRUGS (4)
  1. RAPAMUNE [Suspect]
     Indication: PROPHYLAXIS AGAINST TRANSPLANT REJECTION
     Dosage: 15 MG 1X PER 1 DAY
     Route: 048
     Dates: start: 20030206, end: 20030206
  2. RAPAMUNE [Suspect]
     Dates: start: 20030207, end: 20030430
  3. RAPAMUNE [Suspect]
     Dosage: 5 MG 1X PER 1 DAY
     Route: 048
     Dates: start: 20030501
  4. CELLCEPT [Concomitant]

REACTIONS (4)
  - BLADDER DIVERTICULUM [None]
  - BLOOD CREATININE INCREASED [None]
  - HYDROCELE [None]
  - LYMPHOCELE [None]
